FAERS Safety Report 6739813-X (Version None)
Quarter: 2010Q2

REPORT INFORMATION
  Report Type: 
  Country: None (occurrence: None)
  Receive Date: 20100525
  Receipt Date: 20100512
  Transmission Date: 20101027
  Serious: Yes (Hospitalization, Other)
  Sender: FDA-Public Use
  Company Number: PHHY2010US31332

PATIENT
  Sex: Male
  Weight: 21 kg

DRUGS (1)
  1. EXJADE [Suspect]
     Indication: THALASSAEMIA
     Dosage: 750 MG, QD
     Dates: start: 20060426, end: 20100323

REACTIONS (1)
  - TRANSPLANT [None]
